FAERS Safety Report 23870455 (Version 1)
Quarter: 2024Q2

REPORT INFORMATION
  Report Type: Spontaneous
  Country: JP (occurrence: JP)
  Receive Date: 20240518
  Receipt Date: 20240518
  Transmission Date: 20240716
  Serious: Yes (Other)
  Sender: FDA-Public Use
  Company Number: JP-ABBVIE-5761215

PATIENT
  Sex: Female
  Weight: 43 kg

DRUGS (1)
  1. RINVOQ [Suspect]
     Active Substance: UPADACITINIB
     Indication: Rheumatoid arthritis
     Route: 048
     Dates: start: 202403

REACTIONS (9)
  - Feeling abnormal [Unknown]
  - Crying [Unknown]
  - Malaise [Unknown]
  - Drug ineffective [Unknown]
  - Limb injury [Unknown]
  - Abulia [Unknown]
  - Asthenia [Unknown]
  - Decreased appetite [Unknown]
  - Traumatic haemorrhage [Unknown]
